FAERS Safety Report 10032882 (Version 3)
Quarter: 2014Q3

REPORT INFORMATION
  Report Type: Report from Study
  Country: JP (occurrence: JP)
  Receive Date: 20140324
  Receipt Date: 20140912
  Transmission Date: 20150326
  Serious: Yes (Other)
  Sender: FDA-Public Use
  Company Number: JP-AMGEN-JPNCT2014020109

PATIENT
  Age: 64 Year

DRUGS (6)
  1. TAXOTERE [Concomitant]
     Active Substance: DOCETAXEL
     Dosage: UNK, FOUR TIMES EVERY THREE WEEKS
     Dates: start: 20110829, end: 20111107
  2. FARMORUBICIN [Concomitant]
     Active Substance: EPIRUBICIN HYDROCHLORIDE
     Dosage: UNK, FOUR TIMES EVERY THREE WEEKS
     Dates: start: 20111212, end: 20120220
  3. HERCEPTIN [Concomitant]
     Active Substance: TRASTUZUMAB
     Dosage: UNK
     Dates: start: 20110829, end: 20130129
  4. DECADRON [Concomitant]
     Active Substance: DEXAMETHASONE
     Dosage: UNK, 6.6-9.9 MG
     Dates: start: 20110829, end: 20120220
  5. DENOSUMAB [Suspect]
     Active Substance: DENOSUMAB
     Indication: BREAST CANCER
     Dosage: 120 MG, UNK
     Route: 065
     Dates: start: 20110829
  6. ENDOXAN                            /00021101/ [Concomitant]
     Active Substance: CYCLOPHOSPHAMIDE
     Dosage: UNK, FOUR TIMES EVERY THREE WEEKS
     Dates: start: 20111212, end: 20120220

REACTIONS (1)
  - Exposed bone in jaw [Recovered/Resolved]

NARRATIVE: CASE EVENT DATE: 20130813
